FAERS Safety Report 7803364-1 (Version None)
Quarter: 2011Q4

REPORT INFORMATION
  Report Type: 
  Country: None (occurrence: None)
  Receive Date: 20111007
  Receipt Date: 20111005
  Transmission Date: 20120403
  Serious: Yes (Death, Other)
  Sender: FDA-Public Use
  Company Number: PHEH2009US07544

PATIENT
  Sex: Male

DRUGS (29)
  1. DIGOXIN [Concomitant]
  2. NEURONTIN [Concomitant]
  3. NEUMEGA [Concomitant]
  4. SPIRIVA [Concomitant]
  5. VELCADE [Concomitant]
  6. COMBIVENT [Concomitant]
  7. VIOXX [Concomitant]
  8. DECADRON [Concomitant]
  9. ZOMETA [Suspect]
     Dosage: 4 MG, QMO
     Route: 042
     Dates: end: 20070821
  10. LASIX [Concomitant]
  11. PREDNISONE [Concomitant]
  12. LIDOCAINE [Concomitant]
  13. CYTOXAN [Concomitant]
  14. MIDAZOLAM HCL [Concomitant]
  15. NEUPOGEN [Concomitant]
  16. ANZEMET [Concomitant]
  17. THALIDOMIDE [Concomitant]
  18. KYTRIL [Concomitant]
  19. AREDIA [Suspect]
     Dosage: 90 MG, QMO
     Route: 042
  20. EPINEPHRINE [Concomitant]
  21. LORTAB [Concomitant]
  22. FENTANYL [Concomitant]
  23. DEXAMETHASONE [Concomitant]
  24. METOPROLOL TARTRATE [Concomitant]
  25. VALIUM [Concomitant]
  26. NEULASTA [Concomitant]
  27. OXYCONTIN [Concomitant]
  28. MELPHALAN HYDROCHLORIDE [Concomitant]
  29. FAMVIR                                  /NET/ [Concomitant]

REACTIONS (61)
  - ANXIETY [None]
  - FATIGUE [None]
  - DYSPNOEA [None]
  - RADIATION OESOPHAGITIS [None]
  - HERPES ZOSTER [None]
  - CONFUSIONAL STATE [None]
  - ASTERIXIS [None]
  - FIBULA FRACTURE [None]
  - OSTEONECROSIS OF JAW [None]
  - RIGHT ATRIAL DILATATION [None]
  - THORACIC VERTEBRAL FRACTURE [None]
  - HAEMORRHOIDS [None]
  - PLEURAL EFFUSION [None]
  - SPLENIC INFARCTION [None]
  - GENERAL PHYSICAL HEALTH DETERIORATION [None]
  - HYPOAESTHESIA [None]
  - BONE NEOPLASM [None]
  - LIPOMA [None]
  - PULMONARY MASS [None]
  - ASTHENIA [None]
  - ANHEDONIA [None]
  - PLASMACYTOMA [None]
  - ARRHYTHMIA SUPRAVENTRICULAR [None]
  - PNEUMONIA [None]
  - RESPIRATORY FAILURE [None]
  - CARDIAC FAILURE CONGESTIVE [None]
  - HUMERUS FRACTURE [None]
  - BRONCHOSPASM [None]
  - LEUKOPENIA [None]
  - COMPRESSION FRACTURE [None]
  - DIVERTICULUM INTESTINAL [None]
  - SOMNOLENCE [None]
  - CHRONIC OBSTRUCTIVE PULMONARY DISEASE [None]
  - ATRIAL FIBRILLATION [None]
  - PANCYTOPENIA [None]
  - INGUINAL HERNIA [None]
  - GAIT DISTURBANCE [None]
  - PAIN [None]
  - RENAL FAILURE [None]
  - BACK PAIN [None]
  - CARDIAC ENZYMES INCREASED [None]
  - HYPOXIA [None]
  - HYPOALBUMINAEMIA [None]
  - LUNG NEOPLASM [None]
  - DECUBITUS ULCER [None]
  - MULTIPLE MYELOMA [None]
  - PULMONARY HYPERTENSION [None]
  - THROMBOCYTOPENIA [None]
  - OEDEMA PERIPHERAL [None]
  - BURSITIS [None]
  - CLAUSTROPHOBIA [None]
  - TREMOR [None]
  - CHEST PAIN [None]
  - PULMONARY FIBROSIS [None]
  - ABDOMINAL PAIN [None]
  - EXPOSED BONE IN JAW [None]
  - UMBILICAL HERNIA [None]
  - BRONCHITIS [None]
  - COMMINUTED FRACTURE [None]
  - ATELECTASIS [None]
  - SPINAL OSTEOARTHRITIS [None]
